FAERS Safety Report 4704833-3 (Version None)
Quarter: 2005Q2

REPORT INFORMATION
  Report Type: 
  Country: None (occurrence: None)
  Receive Date: 20050630
  Receipt Date: 20050630
  Transmission Date: 20051028
  Serious: Yes (Hospitalization)
  Sender: FDA-Public Use
  Company Number: None

PATIENT
  Age: 59 Year
  Sex: Female
  Weight: 68.6 kg

DRUGS (8)
  1. PACLITAXEL [Suspect]
     Indication: NON-SMALL CELL LUNG CANCER
     Dosage: 50MG/M2    INTRAVENOU
     Route: 042
     Dates: start: 20050523, end: 20050620
  2. CARBOPLATIN [Suspect]
     Indication: NON-SMALL CELL LUNG CANCER
     Dosage: AUG 2       INTRAVENOU
     Route: 042
     Dates: start: 20050523, end: 20050620
  3. LEXAPRO [Concomitant]
  4. CLONAZEPAM [Concomitant]
  5. FIORICET [Concomitant]
  6. HYDROCHLOROTHIAZIDE [Concomitant]
  7. ZYRTEC [Concomitant]
  8. DILTIAZEM [Concomitant]

REACTIONS (3)
  - HEADACHE [None]
  - MALAISE [None]
  - PYREXIA [None]
